FAERS Safety Report 10257419 (Version 2)
Quarter: 2014Q2

REPORT INFORMATION
  Report Type: Spontaneous
  Country: US (occurrence: None)
  Receive Date: 20140620
  Receipt Date: 20140623
  Transmission Date: 20141212
  Serious: Yes (Other)
  Sender: FDA-Public Use
  Company Number: 2391533

PATIENT
  Age: 10 Year
  Sex: Male
  Weight: 32.9 kg

DRUGS (3)
  1. CARBOPLATIN [Suspect]
     Indication: OPTIC NERVE NEOPLASM
     Route: 041
     Dates: start: 20131204
  2. CARBOPLATIN [Suspect]
     Indication: NEUROFIBROMATOSIS
     Route: 041
     Dates: start: 20131204
  3. VINCRISTINE HOSPIRA 1 MG/ML SOL FOR INJ (VINCRISTINE SULFATE) [Concomitant]

REACTIONS (5)
  - Cough [None]
  - Infusion site erythema [None]
  - Infusion site swelling [None]
  - Infusion site urticaria [None]
  - Urticaria [None]
